FAERS Safety Report 8183866-1 (Version None)
Quarter: 2012Q1

REPORT INFORMATION
  Report Type: 
  Country: None (occurrence: None)
  Receive Date: 20120305
  Receipt Date: 20120228
  Transmission Date: 20120608
  Serious: Yes (Death)
  Sender: FDA-Public Use
  Company Number: US-ELI_LILLY_AND_COMPANY-US201202008311

PATIENT
  Age: 69 Year
  Sex: Female

DRUGS (5)
  1. ANGIOMAX [Concomitant]
  2. VASOPRESSIN [Concomitant]
  3. EPINEPHRINE [Concomitant]
  4. EFFIENT [Suspect]
     Indication: STENT PLACEMENT
     Dosage: 60 MG, SINGLE LOADING DOSE
     Dates: start: 20120227, end: 20120227
  5. LEVOPHED [Concomitant]

REACTIONS (1)
  - CARDIO-RESPIRATORY ARREST [None]
